FAERS Safety Report 5910899-5 (Version None)
Quarter: 2008Q4

REPORT INFORMATION
  Report Type: 
  Country: None (occurrence: None)
  Receive Date: 20081007
  Receipt Date: 20080630
  Transmission Date: 20090506
  Serious: No
  Sender: FDA-Public Use
  Company Number: US-ASTRAZENECA-2008UW13131

PATIENT
  Age: 70 Year
  Sex: Female

DRUGS (4)
  1. ARIMIDEX [Suspect]
     Indication: BREAST CANCER
     Dates: start: 20060101
  2. FLAX SEED [Concomitant]
  3. FISH OIL [Concomitant]
  4. FIBER [Concomitant]

REACTIONS (5)
  - AMNESIA [None]
  - BLISTER [None]
  - ENERGY INCREASED [None]
  - HYPOAESTHESIA [None]
  - INSOMNIA [None]
